FAERS Safety Report 9850523 (Version 1)
Quarter: 2013Q4

REPORT INFORMATION
  Report Type: Spontaneous
  Country: US (occurrence: None)
  Receive Date: 20131226
  Receipt Date: 20131226
  Transmission Date: 20140711
  Serious: Yes (Hospitalization)
  Sender: FDA-Public Use
  Company Number: PHEH2013US003246

PATIENT
  Age: 79 Year
  Sex: Female

DRUGS (2)
  1. DIOVAN [Suspect]
  2. VALSARTAN [Suspect]

REACTIONS (5)
  - Blood pressure systolic increased [None]
  - Hearing impaired [None]
  - Fear [None]
  - Feeling abnormal [None]
  - Dissociation [None]
